FAERS Safety Report 5626834-3 (Version None)
Quarter: 2008Q1

REPORT INFORMATION
  Report Type: 
  Country: None (occurrence: None)
  Receive Date: 20080212
  Receipt Date: 20080129
  Transmission Date: 20080703
  Serious: Yes (Hospitalization, Disabling)
  Sender: FDA-Public Use
  Company Number: 2008S1001619

PATIENT
  Age: 83 Year
  Sex: Female

DRUGS (10)
  1. CIPROFLOXACIN [Suspect]
     Indication: DRUG USE FOR UNKNOWN INDICATION
     Dosage: 500 MG
     Dates: start: 20071228, end: 20080101
  2. ALENDRONIC ACID (ALENDRONIC ACID) [Concomitant]
  3. CITALOPRAM HYDROBROMIDE [Concomitant]
  4. CLARITHROMYCIN [Concomitant]
  5. CO-CODAMOL (PANADEINE CO) [Concomitant]
  6. FERROUS SULPHATE (FERROUS SULFATE) [Concomitant]
  7. FOLIC ACID [Concomitant]
  8. LANSOPRAZOLE [Concomitant]
  9. PREDNISOLONE [Concomitant]
  10. QUININE SULFATE [Concomitant]

REACTIONS (1)
  - NEUROPATHY PERIPHERAL [None]
